FAERS Safety Report 13561575 (Version 1)
Quarter: 2017Q2

REPORT INFORMATION
  Report Type: Report from Study
  Country: CO (occurrence: CO)
  Receive Date: 20170518
  Receipt Date: 20170518
  Transmission Date: 20170830
  Serious: Yes (Other)
  Sender: FDA-Public Use
  Company Number: PHHY2016CO081634

PATIENT
  Age: 38 Year
  Sex: Female
  Weight: 74 kg

DRUGS (1)
  1. COSENTYX [Suspect]
     Active Substance: SECUKINUMAB
     Indication: PSORIASIS
     Dosage: 300 MG, QMO
     Route: 058
     Dates: start: 20160212, end: 20170303

REACTIONS (8)
  - Dysgeusia [Unknown]
  - Cough [Unknown]
  - Rash generalised [Unknown]
  - Haemoptysis [Unknown]
  - Thrombosis [Unknown]
  - Influenza like illness [Unknown]
  - Productive cough [Unknown]
  - Pruritus [Unknown]

NARRATIVE: CASE EVENT DATE: 20160801
